FAERS Safety Report 18514864 (Version 2)
Quarter: 2021Q4

REPORT INFORMATION
  Report Type: Spontaneous
  Country: US (occurrence: US)
  Receive Date: 20201118
  Receipt Date: 20211129
  Transmission Date: 20220304
  Serious: No
  Sender: FDA-Public Use
  Company Number: US-UCBSA-2019039663

PATIENT
  Sex: Female
  Weight: 49 kg

DRUGS (4)
  1. VIMPAT [Suspect]
     Active Substance: LACOSAMIDE
     Indication: Product used for unknown indication
     Dosage: UNK
  2. ZONISAMIDE [Concomitant]
     Active Substance: ZONISAMIDE
     Indication: Product used for unknown indication
     Dosage: UNK
  3. HYDROXYCHLOROQUINE [Concomitant]
     Active Substance: HYDROXYCHLOROQUINE
     Indication: Product used for unknown indication
     Dosage: UNK
  4. PANTOPRAZOLE [Concomitant]
     Active Substance: PANTOPRAZOLE
     Indication: Product used for unknown indication
     Dosage: UNK

REACTIONS (1)
  - Hypersensitivity [Unknown]
